FAERS Safety Report 8958881 (Version 4)
Quarter: 2015Q2

REPORT INFORMATION
  Report Type: Report from Study
  Country: US (occurrence: US)
  Receive Date: 20121211
  Receipt Date: 20150403
  Transmission Date: 20150821
  Serious: Yes (Hospitalization)
  Sender: FDA-Public Use
  Company Number: US-TEVA-374442USA

PATIENT
  Age: 59 Year
  Sex: Female
  Weight: 134 kg

DRUGS (17)
  1. HYDROCHLOROTHIAZIDE. [Concomitant]
     Active Substance: HYDROCHLOROTHIAZIDE
     Dates: start: 2012
  2. LEVOTHYROXINE [Concomitant]
     Active Substance: LEVOTHYROXINE
     Dates: start: 2010
  3. TH-302 [Suspect]
     Active Substance: EVOFOSFAMIDE
     Indication: SARCOMA
     Dates: start: 20121024
  4. ATENOLOL. [Concomitant]
     Active Substance: ATENOLOL
     Dates: start: 1998
  5. METFORMIN [Concomitant]
     Active Substance: METFORMIN HYDROCHLORIDE
     Dates: start: 2010
  6. SIMVASTATIN. [Concomitant]
     Active Substance: SIMVASTATIN
     Dates: start: 2010
  7. ZOFRAN [Concomitant]
     Active Substance: ONDANSETRON HYDROCHLORIDE
     Dates: start: 20121024
  8. TH-302 [Suspect]
     Active Substance: EVOFOSFAMIDE
     Dates: start: 20121115, end: 20121115
  9. NOVOLOG [Concomitant]
     Active Substance: INSULIN ASPART
     Dates: start: 2004
  10. DOXORUBICIN [Suspect]
     Active Substance: DOXORUBICIN
     Dosage: TOTAL DOSE 165MG, BOLUS, CYCLE 2
     Dates: start: 20121115, end: 20121115
  11. COMPAZINE [Concomitant]
     Active Substance: PROCHLORPERAZINE MALEATE
     Dates: start: 20121024
  12. PAROXETINE HYDROCHLORIDE. [Concomitant]
     Active Substance: PAROXETINE HYDROCHLORIDE
     Dates: start: 1998
  13. ALLOPURINOL. [Concomitant]
     Active Substance: ALLOPURINOL
     Dates: start: 2012
  14. PERCOCET [Concomitant]
     Active Substance: ACETAMINOPHEN\OXYCODONE HYDROCHLORIDE
     Dates: start: 20121024
  15. DOXORUBICIN [Suspect]
     Active Substance: DOXORUBICIN
     Indication: SARCOMA
     Dates: start: 20121024
  16. IMODIUM [Concomitant]
     Active Substance: LOPERAMIDE HYDROCHLORIDE
     Dates: start: 20121102
  17. LANTUS [Concomitant]
     Active Substance: INSULIN GLARGINE
     Dates: start: 201207

REACTIONS (4)
  - Renal failure [Not Recovered/Not Resolved]
  - Diarrhoea [Unknown]
  - Dehydration [Recovered/Resolved]
  - Dehydration [Recovered/Resolved]

NARRATIVE: CASE EVENT DATE: 20121119
